FAERS Safety Report 17419438 (Version 1)
Quarter: 2020Q1

REPORT INFORMATION
  Report Type: Spontaneous
  Country: US (occurrence: US)
  Receive Date: 20200214
  Receipt Date: 20200214
  Transmission Date: 20200409
  Serious: No
  Sender: FDA-Public Use
  Company Number: US-GLAXOSMITHKLINE-US2020024710

PATIENT
  Age: 69 Year
  Sex: Female

DRUGS (2)
  1. ABREVA [Suspect]
     Active Substance: DOCOSANOL
     Dosage: 5 DAYS
     Dates: start: 20200206
  2. ABREVA [Suspect]
     Active Substance: DOCOSANOL
     Indication: ORAL HERPES
     Dosage: 5 DAYS
     Dates: start: 20200206

REACTIONS (7)
  - Swelling face [Unknown]
  - Application site scab [Unknown]
  - Application site irritation [Unknown]
  - Application site inflammation [Unknown]
  - Toothache [Unknown]
  - Condition aggravated [Unknown]
  - Oral herpes [Unknown]

NARRATIVE: CASE EVENT DATE: 20200206
